FAERS Safety Report 25741099 (Version 1)
Quarter: 2025Q3

REPORT INFORMATION
  Report Type: Spontaneous
  Country: JP (occurrence: JP)
  Receive Date: 20250829
  Receipt Date: 20250829
  Transmission Date: 20251020
  Serious: Yes (Other)
  Sender: AMGEN
  Company Number: JP-AMGEN-JPNSP2025168239

PATIENT

DRUGS (2)
  1. BEVACIZUMAB [Suspect]
     Active Substance: BEVACIZUMAB
     Indication: Hepatocellular carcinoma
     Dosage: 15 MILLIGRAM/KILOGRAM, Q3WK
     Route: 040
  2. ATEZOLIZUMAB [Concomitant]
     Active Substance: ATEZOLIZUMAB
     Indication: Hepatocellular carcinoma
     Dosage: 1200 MILLIGRAM, Q3WK
     Route: 040

REACTIONS (12)
  - Hepatocellular carcinoma [Unknown]
  - Hepatic function abnormal [Unknown]
  - Rash [Unknown]
  - Oedema [Unknown]
  - Ascites [Unknown]
  - Immune-mediated adverse reaction [Unknown]
  - Proteinuria [Unknown]
  - Fatigue [Unknown]
  - Decreased appetite [Unknown]
  - Hypertension [Unknown]
  - Drug effective for unapproved indication [Unknown]
  - Off label use [Unknown]
